FAERS Safety Report 17110375 (Version 1)
Quarter: 2019Q4

REPORT INFORMATION
  Report Type: Spontaneous
  Country: US (occurrence: US)
  Receive Date: 20191204
  Receipt Date: 20191204
  Transmission Date: 20200122
  Serious: Yes (Other)
  Sender: FDA-Public Use
  Company Number: US-PFIZER INC-2019520668

PATIENT
  Age: 88 Year
  Sex: Female

DRUGS (1)
  1. XANAX [Suspect]
     Active Substance: ALPRAZOLAM
     Dosage: UNK(SHE USED IT 2-3 TIMES A DAY. SHE GOT THE 0.5 MG AND TOOK 0.25 MG)

REACTIONS (5)
  - Dysphonia [Unknown]
  - Gait disturbance [Unknown]
  - Dizziness [Unknown]
  - Vertigo [Unknown]
  - Deafness [Unknown]
